FAERS Safety Report 17757145 (Version 5)
Quarter: 2020Q2

REPORT INFORMATION
  Report Type: Spontaneous
  Country: RO (occurrence: RO)
  Receive Date: 20200504
  Receipt Date: 20200604
  Transmission Date: 20200714
  Serious: Yes (Hospitalization, Other)
  Sender: FDA-Public Use
  Company Number: RO-VALIDUS PHARMACEUTICALS LLC-RO-2020VAL000354

PATIENT

DRUGS (10)
  1. AMLODIPINE                         /00972402/ [Suspect]
     Active Substance: AMLODIPINE BESYLATE
     Indication: SCLERODERMA
     Dosage: UNK
     Route: 065
  2. METHYLPREDNISOLONE. [Suspect]
     Active Substance: METHYLPREDNISOLONE
     Indication: SCLERODERMA
     Dosage: UNK
     Route: 065
  3. BOSENTAN. [Suspect]
     Active Substance: BOSENTAN
     Indication: PRODUCT USED FOR UNKNOWN INDICATION
     Dosage: UNK
     Route: 065
  4. PENTOXIFYLLINE. [Suspect]
     Active Substance: PENTOXIFYLLINE
     Indication: SCLERODERMA
     Dosage: UNK
     Route: 065
  5. METOPROLOL TARTRATE. [Suspect]
     Active Substance: METOPROLOL TARTRATE
     Indication: SCLERODERMA
     Dosage: UNK
     Route: 065
  6. OMEPRAZOLE. [Suspect]
     Active Substance: OMEPRAZOLE
     Indication: GASTRIC DISORDER
     Dosage: UNK
     Route: 065
  7. CYCLOPHOSPHAMIDE. [Suspect]
     Active Substance: CYCLOPHOSPHAMIDE
     Indication: PRODUCT USED FOR UNKNOWN INDICATION
     Dosage: UNK
     Route: 065
  8. SULODEXIDE [Suspect]
     Active Substance: SULODEXIDE
     Indication: SCLERODERMA
     Dosage: UNK
     Route: 065
  9. CARBOPLATIN. [Suspect]
     Active Substance: CARBOPLATIN
     Indication: CHEMOTHERAPY
     Dosage: 3 COURSES
     Route: 065
  10. GEMCITABINE HYDROCHLORIDE. [Suspect]
     Active Substance: GEMCITABINE HYDROCHLORIDE
     Indication: CHEMOTHERAPY
     Dosage: 3 COURSES
     Route: 065

REACTIONS (32)
  - Peripheral coldness [Unknown]
  - Aphasia [Unknown]
  - Speech disorder [Recovered/Resolved]
  - Radiotherapy to brain [Unknown]
  - Peripheral ischaemia [Recovered/Resolved]
  - Inflammation [Unknown]
  - Hilar lymphadenopathy [Unknown]
  - Pain in extremity [Unknown]
  - Glucose tolerance impaired [Unknown]
  - Peripheral artery occlusion [Unknown]
  - Mitral valve prolapse [Unknown]
  - Drug dependence [Unknown]
  - Leukopenia [Unknown]
  - Drug ineffective [Unknown]
  - Metabolic syndrome [Unknown]
  - Hypertension [Unknown]
  - Pleural mass [Unknown]
  - Paraesthesia [Recovered/Resolved]
  - Extremity necrosis [Unknown]
  - Cushing^s syndrome [Unknown]
  - Arterial occlusive disease [Unknown]
  - Metastatic neoplasm [Unknown]
  - Obesity [Unknown]
  - Pulse absent [Unknown]
  - Hepatic cancer [Unknown]
  - Biopsy lymph gland [Unknown]
  - Dyslipidaemia [Unknown]
  - Pallor [Unknown]
  - Endarterectomy [Unknown]
  - Lung adenocarcinoma [Unknown]
  - Anxiety [Unknown]
  - Anaemia [Unknown]
